FAERS Safety Report 12289894 (Version 6)
Quarter: 2017Q3

REPORT INFORMATION
  Report Type: Report from Study
  Country: DE (occurrence: DE)
  Receive Date: 20160421
  Receipt Date: 20170920
  Transmission Date: 20171127
  Serious: Yes (Hospitalization, Other)
  Sender: FDA-Public Use
  Company Number: DE-BAYER-2016-071932

PATIENT
  Age: 82 Year
  Sex: Male
  Weight: 86 kg

DRUGS (5)
  1. ADEMPAS [Suspect]
     Active Substance: RIOCIGUAT
     Indication: PULMONARY HYPERTENSION
     Dosage: 4.5MG DAILY
     Route: 048
     Dates: start: 20160420
  2. ADEMPAS [Suspect]
     Active Substance: RIOCIGUAT
     Indication: PULMONARY HYPERTENSION
     Dosage: 7.5MG DAILY
     Route: 048
     Dates: start: 20150928, end: 20160308
  3. ADEMPAS [Suspect]
     Active Substance: RIOCIGUAT
     Indication: PULMONARY HYPERTENSION
     Dosage: UNK
     Dates: start: 20150819, end: 20160309
  4. ADEMPAS [Suspect]
     Active Substance: RIOCIGUAT
     Indication: PULMONARY HYPERTENSION
     Dosage: 4.5MG DAILY
  5. PHENPROCOUMON [Concomitant]
     Active Substance: PHENPROCOUMON
     Indication: ANTICOAGULANT THERAPY
     Dosage: UNK
     Route: 048

REACTIONS (8)
  - Dyspnoea at rest [Recovered/Resolved]
  - Gastric ulcer [Recovering/Resolving]
  - Syncope [Recovered/Resolved]
  - Headache [Recovering/Resolving]
  - Epistaxis [Recovering/Resolving]
  - Oxygen therapy [Recovered/Resolved]
  - Mitral valve stenosis [Unknown]
  - Bifascicular block [Not Recovered/Not Resolved]

NARRATIVE: CASE EVENT DATE: 201601
